FAERS Safety Report 19790579 (Version 1)
Quarter: 2021Q3

REPORT INFORMATION
  Report Type: Report from Study
  Country: CA (occurrence: CA)
  Receive Date: 20210906
  Receipt Date: 20210906
  Transmission Date: 20211014
  Serious: Yes (Other)
  Sender: FDA-Public Use
  Company Number: NVSC2021CA138338

PATIENT
  Age: 58 Year
  Sex: Female

DRUGS (1)
  1. MAYZENT [Suspect]
     Active Substance: SIPONIMOD
     Indication: SECONDARY PROGRESSIVE MULTIPLE SCLEROSIS
     Dosage: UNK
     Route: 048
     Dates: start: 20210614

REACTIONS (9)
  - Anxiety [Unknown]
  - Macular oedema [Unknown]
  - Fatigue [Unknown]
  - Ear pain [Unknown]
  - Blindness [Unknown]
  - Peripheral swelling [Unknown]
  - Haemorrhage [Unknown]
  - Visual field defect [Unknown]
  - Vision blurred [Unknown]

NARRATIVE: CASE EVENT DATE: 20210616
